FAERS Safety Report 8998386 (Version 1)
Quarter: 2013Q1

REPORT INFORMATION
  Report Type: Other
  Country: GB (occurrence: GB)
  Receive Date: 20130102
  Receipt Date: 20130102
  Transmission Date: 20140127
  Serious: Yes (Other)
  Sender: FDA-Public Use
  Company Number: GB-DENTSPLY-2012SCDP003032

PATIENT
  Age: 51 Year
  Sex: Male
  Weight: 73.2 kg

DRUGS (1)
  1. LIGNOCAINE WITH ADRENALINE [Suspect]
     Indication: TOOTH EXTRACTION
     Dosage: 2.2 ML, UNK
     Route: 051
     Dates: start: 20090408, end: 20090408

REACTIONS (8)
  - Dental discomfort [None]
  - Headache [None]
  - Headache [None]
  - Nerve injury [None]
  - Hypoaesthesia oral [None]
  - Dysphagia [None]
  - Tongue disorder [None]
  - Toothache [None]
